FAERS Safety Report 25869261 (Version 1)
Quarter: 2025Q4

REPORT INFORMATION
  Report Type: Spontaneous
  Country: UY (occurrence: UY)
  Receive Date: 20251001
  Receipt Date: 20251001
  Transmission Date: 20260117
  Serious: Yes (Other)
  Sender: RANBAXY
  Company Number: UY-SUN PHARMACEUTICAL INDUSTRIES LTD-2025R1-529351

PATIENT
  Age: 7 Year
  Sex: Male

DRUGS (2)
  1. PREDNISONE [Suspect]
     Active Substance: PREDNISONE
     Indication: Nephrotic syndrome
     Dosage: UNK
     Route: 065
  2. CYCLOSPORINE [Suspect]
     Active Substance: CYCLOSPORINE
     Indication: Nephrotic syndrome
     Dosage: T 5 MG/KG/DAY
     Route: 065

REACTIONS (2)
  - Disease recurrence [Unknown]
  - Toxicity to various agents [Recovering/Resolving]
